FAERS Safety Report 5283239-5 (Version None)
Quarter: 2007Q2

REPORT INFORMATION
  Report Type: 
  Country: None (occurrence: None)
  Receive Date: 20070402
  Receipt Date: 20070326
  Transmission Date: 20071010
  Serious: Yes (Hospitalization)
  Sender: FDA-Public Use
  Company Number: FR-GLAXOSMITHKLINE-B0464394A

PATIENT
  Age: 90 Year
  Sex: Male

DRUGS (1)
  1. VALACYCLOVIR HCL [Suspect]
     Indication: HERPES ZOSTER
     Dosage: 1UNIT THREE TIMES PER DAY
     Route: 048
     Dates: start: 20070216, end: 20070222

REACTIONS (5)
  - CONVULSION [None]
  - GAZE PALSY [None]
  - MALAISE [None]
  - SYNCOPE [None]
  - URINARY INCONTINENCE [None]
